FAERS Safety Report 19750859 (Version 1)
Quarter: 2021Q3

REPORT INFORMATION
  Report Type: Spontaneous
  Country: AU (occurrence: AU)
  Receive Date: 20210826
  Receipt Date: 20210826
  Transmission Date: 20211014
  Serious: Yes (Other)
  Sender: FDA-Public Use
  Company Number: AU-PFIZER INC-202101056485

PATIENT
  Sex: Female

DRUGS (1)
  1. CLINDAMYCIN. [Suspect]
     Active Substance: CLINDAMYCIN
     Dosage: UNK

REACTIONS (5)
  - Lip swelling [Unknown]
  - Anaphylactic reaction [Unknown]
  - Lymphoedema [Unknown]
  - Drug hypersensitivity [Unknown]
  - Cellulitis [Unknown]
